FAERS Safety Report 9419005 (Version 1)
Quarter: 2013Q3

REPORT INFORMATION
  Report Type: Spontaneous
  Country: US (occurrence: US)
  Receive Date: 20130725
  Receipt Date: 20130725
  Transmission Date: 20140515
  Serious: Yes (Other)
  Sender: FDA-Public Use
  Company Number: PHEH2013US015450

PATIENT
  Sex: Female

DRUGS (21)
  1. TEGRETOL-XR [Suspect]
     Dosage: 400 MG, TID
  2. CARBAMAZEPINE [Suspect]
     Dosage: UNK
  3. GABAPENTIN [Concomitant]
     Dosage: UNK UKN, TID
  4. AMLODIPINE [Concomitant]
     Dosage: UNK UKN, UNK
  5. MECLIZINE [Concomitant]
     Dosage: UNK UKN, UNK
  6. LISINOPRIL [Concomitant]
     Dosage: UNK UKN, UNK
  7. HYDRALAZINE [Concomitant]
     Dosage: UNK UKN, UNK
  8. SPIRONOLACTONE [Concomitant]
     Dosage: UNK UKN, UNK
  9. MONTELUKAST [Concomitant]
     Dosage: UNK UKN, UNK
  10. FAMOTIDINE [Concomitant]
     Dosage: UNK UKN, UNK
  11. METFORMIN HCL [Concomitant]
     Dosage: UNK UKN, UNK
  12. OXYCODONE [Concomitant]
     Dosage: UNK UKN, UNK
  13. SYMBICORT [Concomitant]
     Dosage: UNK UKN, UNK
  14. COMBIVENT [Concomitant]
     Dosage: UNK UKN, UNK
  15. VENTOLINE [Concomitant]
     Dosage: UNK UKN, UNK
  16. FLUTICASONE PROPIONATE [Concomitant]
     Dosage: UNK UKN, UNK
  17. OMEGA 3 FISH OIL                   /06852001/ [Concomitant]
     Dosage: UNK UKN, UNK
  18. BABY ASPIRIN [Concomitant]
     Dosage: 81 MG, UNK
  19. B COMPLEX                          /06490401/ [Concomitant]
     Dosage: UNK UKN, UNK
  20. QVAR [Concomitant]
  21. MULTI VITAMIN [Concomitant]
     Dosage: UNK UKN, QD

REACTIONS (6)
  - Chronic obstructive pulmonary disease [Unknown]
  - Cardiac flutter [Unknown]
  - Burning sensation [Unknown]
  - Feeling abnormal [Unknown]
  - Dyslexia [Unknown]
  - Malaise [Unknown]
